FAERS Safety Report 8870915 (Version 1)
Quarter: 2012Q4

REPORT INFORMATION
  Report Type: 
  Country: US (occurrence: US)
  Receive Date: 20121026
  Receipt Date: 20121026
  Transmission Date: 20130627
  Serious: No
  Sender: FDA-Public Use
  Company Number: US-AMGEN-USASP2012046866

PATIENT
  Sex: Male

DRUGS (6)
  1. ENBREL [Suspect]
     Indication: PRODUCT USED FOR UNKNOWN INDICATION
     Dosage: 50 mg, qwk
     Route: 058
  2. ALCLOMETASONE [Concomitant]
     Dosage: 0.05 %, UNK
  3. VECTICAL [Concomitant]
     Dosage: 3 MCG/GM, UNK
  4. CRESTOR [Concomitant]
     Dosage: 10 mg, UNK
  5. SUPER B COMPLEX                    /01995301/ [Concomitant]
     Dosage: UNK
  6. LUXIQ [Concomitant]
     Dosage: 0.12 %, UNK

REACTIONS (1)
  - Drug ineffective [Unknown]
